FAERS Safety Report 6825487-6 (Version None)
Quarter: 2010Q3

REPORT INFORMATION
  Report Type: 
  Country: None (occurrence: None)
  Receive Date: 20100708
  Receipt Date: 20070509
  Transmission Date: 20110219
  Serious: Yes (Other)
  Sender: FDA-Public Use
  Company Number: US-PFIZER INC-2006142479

PATIENT
  Sex: Female

DRUGS (4)
  1. CHANTIX [Suspect]
     Indication: EX-TOBACCO USER
     Dates: start: 20061101
  2. NICOTINE [Suspect]
  3. DRUG, UNSPECIFIED [Concomitant]
  4. THYROID TAB [Concomitant]

REACTIONS (9)
  - ABNORMAL DREAMS [None]
  - DIZZINESS [None]
  - DRUG WITHDRAWAL SYNDROME [None]
  - GLUCOSE TOLERANCE IMPAIRED [None]
  - NAUSEA [None]
  - NERVOUSNESS [None]
  - STRESS [None]
  - URINARY TRACT INFECTION [None]
  - WEIGHT INCREASED [None]
